FAERS Safety Report 5703082-X (Version None)
Quarter: 2008Q2

REPORT INFORMATION
  Report Type: 
  Country: None (occurrence: None)
  Receive Date: 20080411
  Receipt Date: 20080402
  Transmission Date: 20081010
  Serious: Yes (Hospitalization)
  Sender: FDA-Public Use
  Company Number: US-PFIZER INC-2005103594

PATIENT
  Sex: Male
  Weight: 81.6 kg

DRUGS (3)
  1. SU-011,248 [Suspect]
     Indication: NEURILEMMOMA MALIGNANT
     Route: 048
     Dates: start: 20050609, end: 20050706
  2. MOTRIN [Concomitant]
     Route: 048
  3. PERCOCET [Concomitant]
     Route: 048

REACTIONS (2)
  - DYSPNOEA [None]
  - PLEURAL EFFUSION [None]
